FAERS Safety Report 10192420 (Version 2)
Quarter: 2014Q2

REPORT INFORMATION
  Report Type: Report from Study
  Country: AR (occurrence: AR)
  Receive Date: 20140523
  Receipt Date: 20140523
  Transmission Date: 20141212
  Serious: Yes (Death, Hospitalization)
  Sender: FDA-Public Use
  Company Number: AR-BRISTOL-MYERS SQUIBB COMPANY-20615407

PATIENT
  Age: 57 Year
  Sex: Female

DRUGS (1)
  1. IXEMPRA FOR INJ [Suspect]
     Dosage: 15MG INJ.
     Route: 042
     Dates: start: 20131230

REACTIONS (4)
  - Death [Fatal]
  - Enterocolitis [Recovered/Resolved]
  - Gastrointestinal pain [Recovered/Resolved]
  - Blood pressure decreased [Recovered/Resolved]
